FAERS Safety Report 16938692 (Version 1)
Quarter: 2019Q4

REPORT INFORMATION
  Report Type: Report from Study
  Country: PK (occurrence: PK)
  Receive Date: 20191019
  Receipt Date: 20191019
  Transmission Date: 20200122
  Serious: Yes (Death)
  Sender: FDA-Public Use
  Company Number: NVSC2019PK010722

PATIENT
  Age: 17 Year
  Sex: Male

DRUGS (2)
  1. REVOLADE [Suspect]
     Active Substance: ELTROMBOPAG
     Indication: IMMUNE THROMBOCYTOPENIC PURPURA
     Dosage: 1 DF (25 MG), BID
     Route: 048
     Dates: start: 20190829
  2. SANDIMMUN NEORAL [Suspect]
     Active Substance: CYCLOSPORINE
     Indication: TRANSPLANT
     Dosage: 1 DF (100 MG), BID
     Route: 048
     Dates: start: 20190918

REACTIONS (1)
  - Death [Fatal]

NARRATIVE: CASE EVENT DATE: 20190930
